FAERS Safety Report 9006519 (Version 1)
Quarter: 2013Q1

REPORT INFORMATION
  Report Type: Spontaneous
  Country: CN (occurrence: CN)
  Receive Date: 20130110
  Receipt Date: 20130110
  Transmission Date: 20140127
  Serious: Yes (Other)
  Sender: FDA-Public Use
  Company Number: CN-BAYER-2013-001656

PATIENT
  Age: 70 Year
  Sex: Male

DRUGS (2)
  1. NIMOTOP [Suspect]
     Indication: CAROTID ARTERY STENT INSERTION
     Dosage: 10 MG, QD
     Route: 042
     Dates: start: 20100129, end: 20100129
  2. CANFU [Concomitant]
     Route: 040

REACTIONS (1)
  - Anaphylactoid reaction [Recovered/Resolved]
